FAERS Safety Report 5864210-9 (Version None)
Quarter: 2008Q3

REPORT INFORMATION
  Report Type: 
  Country: None (occurrence: None)
  Receive Date: 20080829
  Receipt Date: 20080818
  Transmission Date: 20090109
  Serious: Yes (Hospitalization)
  Sender: FDA-Public Use
  Company Number: NL-ROCHE-582044

PATIENT
  Age: 26 Year
  Sex: Male

DRUGS (1)
  1. MEFLOQUINE HYDROCHLORIDE [Suspect]
     Indication: MALARIA PROPHYLAXIS
     Route: 065

REACTIONS (6)
  - DECREASED APPETITE [None]
  - DIARRHOEA [None]
  - INSOMNIA [None]
  - PYREXIA [None]
  - RESTLESSNESS [None]
  - VISUAL FIELD DEFECT [None]
